FAERS Safety Report 17146510 (Version 1)
Quarter: 2019Q4

REPORT INFORMATION
  Report Type: Report from Study
  Country: None (occurrence: US)
  Receive Date: 20191212
  Receipt Date: 20191212
  Transmission Date: 20200122
  Serious: Yes (Other)
  Sender: FDA-Public Use
  Company Number: US-ABBVIE-16K-163-3033953-00

PATIENT
  Age: 64 Year
  Sex: Male

DRUGS (7)
  1. VITAMIN D3 [Concomitant]
     Active Substance: CHOLECALCIFEROL
     Indication: PRODUCT USED FOR UNKNOWN INDICATION
  2. TAMSULOSIN [Concomitant]
     Active Substance: TAMSULOSIN
     Indication: PRODUCT USED FOR UNKNOWN INDICATION
  3. IMBRUVICA [Suspect]
     Active Substance: IBRUTINIB
     Indication: CHRONIC LYMPHOCYTIC LEUKAEMIA
     Route: 048
     Dates: start: 20180401
  4. VITAMIN A                          /00056001/ [Concomitant]
     Active Substance: RETINOL
     Indication: PRODUCT USED FOR UNKNOWN INDICATION
  5. VITAMIN B12 [Concomitant]
     Active Substance: CYANOCOBALAMIN
     Indication: PRODUCT USED FOR UNKNOWN INDICATION
  6. IMBRUVICA [Suspect]
     Active Substance: IBRUTINIB
     Indication: CHRONIC LYMPHOCYTIC LEUKAEMIA
     Dosage: 420 MG, UNK
     Route: 065
     Dates: start: 20150401, end: 20160304
  7. FINASTERIDE. [Concomitant]
     Active Substance: FINASTERIDE
     Indication: PRODUCT USED FOR UNKNOWN INDICATION

REACTIONS (3)
  - Renal neoplasm [Recovered/Resolved]
  - Haemoglobin abnormal [Unknown]
  - Dental operation [Recovered/Resolved]

NARRATIVE: CASE EVENT DATE: 20160311
